FAERS Safety Report 24559319 (Version 1)
Quarter: 2024Q4

REPORT INFORMATION
  Report Type: Spontaneous
  Country: US (occurrence: US)
  Receive Date: 20241029
  Receipt Date: 20241029
  Transmission Date: 20250115
  Serious: Yes (Other)
  Sender: CHEPLAPHARM
  Company Number: US-CHEPLA-2024013501

PATIENT
  Age: 65 Year
  Sex: Male

DRUGS (11)
  1. CLONAZEPAM [Suspect]
     Active Substance: CLONAZEPAM
     Dosage: DAILY DOSE: 0.5 MILLIGRAM
  2. OLANZAPINE [Suspect]
     Active Substance: OLANZAPINE
     Indication: Psychotic symptom
  3. OLANZAPINE [Suspect]
     Active Substance: OLANZAPINE
     Indication: Psychotic symptom
     Dosage: DAILY DOSE: 10 MILLIGRAM
  4. QUETIAPINE [Suspect]
     Active Substance: QUETIAPINE
     Indication: Psychotic symptom
     Dosage: NIGHTLY
  5. PAROXETINE [Suspect]
     Active Substance: PAROXETINE
     Dosage: DAILY DOSE: 5 MILLIGRAM
  6. PAROXETINE [Suspect]
     Active Substance: PAROXETINE
     Dosage: 10 PILLS?DAILY DOSE: 10 MILLIGRAM
  7. MIRTAZAPINE [Suspect]
     Active Substance: MIRTAZAPINE
     Dosage: NIGHTLY?DAILY DOSE: 10 MILLIGRAM
  8. LOSARTAN [Suspect]
     Active Substance: LOSARTAN
     Dosage: DAILY DOSE: 100 MILLIGRAM
  9. TRAZODONE [Suspect]
     Active Substance: TRAZODONE HYDROCHLORIDE
     Dosage: NIGHTLY?DAILY DOSE: 50 MILLIGRAM
  10. TRAZODONE [Suspect]
     Active Substance: TRAZODONE HYDROCHLORIDE
     Dosage: 10 PILLS?DAILY DOSE: 50 MILLIGRAM
  11. ESCITALOPRAM [Suspect]
     Active Substance: ESCITALOPRAM OXALATE

REACTIONS (2)
  - Posterior cortical atrophy [Unknown]
  - Drug ineffective [Unknown]
